FAERS Safety Report 25532061 (Version 1)
Quarter: 2025Q3

REPORT INFORMATION
  Report Type: Spontaneous
  Country: US (occurrence: US)
  Receive Date: 20250709
  Receipt Date: 20250709
  Transmission Date: 20251020
  Serious: No
  Sender: MADRIGAL PHARMACEUTICALS
  Company Number: US-MADRIGAL PHARMACEUTICALS, INC-2025REZ6538

PATIENT

DRUGS (7)
  1. REZDIFFRA [Suspect]
     Active Substance: RESMETIROM
     Indication: Metabolic dysfunction-associated steatohepatitis
     Dosage: 100 MILLIGRAM, QD
     Route: 048
     Dates: start: 202505, end: 20250529
  2. TACROLIMUS [Concomitant]
     Active Substance: TACROLIMUS
  3. MYCOPHENOLIC ACID [Concomitant]
     Active Substance: MYCOPHENOLIC ACID
  4. BACTRIM [Concomitant]
     Active Substance: SULFAMETHOXAZOLE\TRIMETHOPRIM
     Indication: Swelling face
     Dates: start: 20250525
  5. BACTRIM [Concomitant]
     Active Substance: SULFAMETHOXAZOLE\TRIMETHOPRIM
     Indication: Pruritus
  6. BACTRIM [Concomitant]
     Active Substance: SULFAMETHOXAZOLE\TRIMETHOPRIM
     Indication: Ocular hyperaemia
  7. BACTRIM [Concomitant]
     Active Substance: SULFAMETHOXAZOLE\TRIMETHOPRIM
     Indication: Lacrimation increased

REACTIONS (4)
  - Swelling face [Unknown]
  - Ocular hyperaemia [Unknown]
  - Lacrimation increased [Unknown]
  - Pruritus [Unknown]

NARRATIVE: CASE EVENT DATE: 20250524
